FAERS Safety Report 5176429-3 (Version None)
Quarter: 2006Q4

REPORT INFORMATION
  Report Type: 
  Country: None (occurrence: None)
  Receive Date: 20061215
  Receipt Date: 20061205
  Transmission Date: 20070319
  Serious: Yes (Hospitalization)
  Sender: FDA-Public Use
  Company Number: JP-ROCHE-473727

PATIENT
  Age: 59 Year
  Sex: Male
  Weight: 66 kg

DRUGS (2)
  1. TOCILIZUMAB [Suspect]
     Indication: RHEUMATOID ARTHRITIS
     Dosage: IN STUDY MRA214JP. THERAPY DISCONTINUED.
     Route: 042
     Dates: start: 20060519, end: 20061012
  2. TOCILIZUMAB [Suspect]
     Dosage: IN STUDY MRA012JP.
     Route: 042
     Dates: start: 20040422, end: 20050324

REACTIONS (1)
  - LUNG NEOPLASM MALIGNANT [None]
